FAERS Safety Report 20007549 (Version 1)
Quarter: 2021Q4

REPORT INFORMATION
  Report Type: Spontaneous
  Country: RU (occurrence: RU)
  Receive Date: 20211028
  Receipt Date: 20211028
  Transmission Date: 20220303
  Serious: Yes (Other)
  Sender: FDA-Public Use
  Company Number: RU-AMGEN-RUSSP2021164950

PATIENT
  Age: 9 Year
  Sex: Female

DRUGS (1)
  1. ROMIPLOSTIM [Suspect]
     Active Substance: ROMIPLOSTIM
     Indication: Immune thrombocytopenia
     Dosage: 250-500 MICROGRAM, QWK
     Route: 065

REACTIONS (2)
  - Haemorrhage intracranial [Unknown]
  - Thrombocytopenia [Unknown]
